FAERS Safety Report 8907022 (Version 2)
Quarter: 2013Q2

REPORT INFORMATION
  Report Type: Spontaneous
  Country: AR (occurrence: AR)
  Receive Date: 20121114
  Receipt Date: 20130503
  Transmission Date: 20140414
  Serious: Yes (Death, Other)
  Sender: FDA-Public Use
  Company Number: PHHY2012AR104652

PATIENT
  Age: 56 Year
  Sex: Female

DRUGS (14)
  1. MEROPENEM [Suspect]
     Indication: SEPTIC EMBOLUS
  2. VALPROIC ACID [Interacting]
     Indication: GRAND MAL CONVULSION
     Dosage: 15 MG/KG,LOADING DOSE AT 72 HOURS AND WAS 95.20 ?G/ML (REFERENCE VALUE: 50-100 UG/ML)
     Route: 042
  3. VALPROIC ACID [Interacting]
     Dosage: 1 MG/KG/HR AS A MAINTENANCE DOSE
     Route: 042
  4. VALPROIC ACID [Interacting]
     Dosage: 24.7 UG/ML, UNK
     Route: 042
  5. PHENYTOIN [Concomitant]
     Dosage: 100 MG/6 HOURS
  6. MIDAZOLAM [Concomitant]
  7. IMIPENEM [Concomitant]
     Indication: SEPTIC EMBOLUS
  8. FLUCONAZOLE [Concomitant]
     Indication: SEPTIC EMBOLUS
  9. CEFTRIAXONE [Concomitant]
     Indication: SEPTIC EMBOLUS
  10. GENTAMICIN [Concomitant]
     Indication: SEPTIC EMBOLUS
  11. VANCOMYCIN [Concomitant]
     Indication: SEPTIC EMBOLUS
  12. METRONIDAZOLE [Concomitant]
     Indication: SEPTIC EMBOLUS
  13. GADOLINIUM [Concomitant]
     Route: 042
  14. METHYLPREDNISOLONE [Concomitant]
     Route: 042

REACTIONS (5)
  - Sepsis [Fatal]
  - Multi-organ failure [Fatal]
  - Depressed level of consciousness [Unknown]
  - Anticonvulsant drug level decreased [Unknown]
  - Drug interaction [Unknown]
